FAERS Safety Report 9163759 (Version 2)
Quarter: 2013Q2

REPORT INFORMATION
  Report Type: Report from Study
  Country: CA (occurrence: CA)
  Receive Date: 20130314
  Receipt Date: 20130517
  Transmission Date: 20140414
  Serious: Yes (Death, Hospitalization, Other)
  Sender: FDA-Public Use
  Company Number: CA-PURDUE-CAN-2013-0003872

PATIENT
  Sex: Female
  Weight: 63.5 kg

DRUGS (4)
  1. OXYNEO 40 MG [Suspect]
     Indication: SPINAL COMPRESSION FRACTURE
     Dosage: 40 MG, 5/DAY
     Route: 065
  2. OXYNEO 40 MG [Suspect]
     Indication: PAIN IN EXTREMITY
  3. DILAUDID [Suspect]
     Indication: PAIN
  4. COUMADIN                           /00014802/ [Concomitant]
     Indication: ANTICOAGULANT THERAPY

REACTIONS (4)
  - Malignant neoplasm progression [Fatal]
  - Rash [Unknown]
  - Constipation [Unknown]
  - Fatigue [Unknown]
